FAERS Safety Report 14435585 (Version 3)
Quarter: 2018Q1

REPORT INFORMATION
  Report Type: Report from Study
  Country: None (occurrence: CO)
  Receive Date: 20180125
  Receipt Date: 20180314
  Transmission Date: 20180509
  Serious: Yes (Hospitalization, Other)
  Sender: FDA-Public Use
  Company Number: CO-ABBVIE-18K-036-2235562-00

PATIENT
  Age: 62 Year
  Sex: Female
  Weight: 80 kg

DRUGS (1)
  1. HUMIRA [Suspect]
     Active Substance: ADALIMUMAB
     Indication: RHEUMATOID ARTHRITIS
     Route: 058
     Dates: start: 20150805, end: 20180102

REACTIONS (4)
  - Ankle fracture [Not Recovered/Not Resolved]
  - Road traffic accident [Unknown]
  - Skin burning sensation [Recovering/Resolving]
  - Burn infection [Unknown]

NARRATIVE: CASE EVENT DATE: 2018
